FAERS Safety Report 23592473 (Version 1)
Quarter: 2024Q1

REPORT INFORMATION
  Report Type: Spontaneous
  Country: AU (occurrence: AU)
  Receive Date: 20240304
  Receipt Date: 20240304
  Transmission Date: 20240409
  Serious: Yes (Other)
  Sender: FDA-Public Use
  Company Number: AU-BRISTOL-MYERS SQUIBB COMPANY-2024-031636

PATIENT
  Age: 75 Year
  Sex: Male

DRUGS (1)
  1. NIVOLUMAB [Suspect]
     Active Substance: NIVOLUMAB
     Indication: Product used for unknown indication
     Route: 042

REACTIONS (1)
  - Conjunctival haemorrhage [Recovering/Resolving]

NARRATIVE: CASE EVENT DATE: 20230824
